FAERS Safety Report 14559814 (Version 1)
Quarter: 2018Q1

REPORT INFORMATION
  Report Type: Spontaneous
  Country: US (occurrence: US)
  Receive Date: 20180220
  Receipt Date: 20180220
  Transmission Date: 20180509
  Serious: Yes (Hospitalization)
  Sender: FDA-Public Use
  Company Number: None

PATIENT
  Sex: Male
  Weight: 144 kg

DRUGS (17)
  1. AMITRIPTYLINE [Concomitant]
     Active Substance: AMITRIPTYLINE
  2. LISINOPRIL. [Concomitant]
     Active Substance: LISINOPRIL
  3. BACLOFEN. [Concomitant]
     Active Substance: BACLOFEN
  4. LANSOPRAZOLE. [Concomitant]
     Active Substance: LANSOPRAZOLE
  5. LYRICA [Concomitant]
     Active Substance: PREGABALIN
  6. KLOR-CON [Concomitant]
     Active Substance: POTASSIUM CHLORIDE
  7. HYDROCHLOROTHIAZIDE. [Concomitant]
     Active Substance: HYDROCHLOROTHIAZIDE
  8. TRAMADOL. [Concomitant]
     Active Substance: TRAMADOL
  9. ESCITALOPRAM [Concomitant]
     Active Substance: ESCITALOPRAM OXALATE
  10. FUROSEMIDE. [Concomitant]
     Active Substance: FUROSEMIDE
  11. ANDROGEL [Suspect]
     Active Substance: TESTOSTERONE
     Indication: BLOOD TESTOSTERONE DECREASED
     Dosage: QUANTITY:1 2;?
     Route: 061
     Dates: start: 20140201, end: 20180220
  12. FENOFIBRATE. [Concomitant]
     Active Substance: FENOFIBRATE
  13. ATORVASTATIN [Concomitant]
     Active Substance: ATORVASTATIN
  14. LEVOTHYROXINE. [Concomitant]
     Active Substance: LEVOTHYROXINE
  15. VAERAPAMIL [Concomitant]
  16. METFORMIN [Concomitant]
     Active Substance: METFORMIN HYDROCHLORIDE
  17. MORPHINE [Concomitant]
     Active Substance: MORPHINE

REACTIONS (1)
  - Rotator cuff syndrome [None]

NARRATIVE: CASE EVENT DATE: 20170615
